FAERS Safety Report 9924655 (Version 1)
Quarter: 2014Q1

REPORT INFORMATION
  Report Type: Spontaneous
  Country: DE (occurrence: None)
  Receive Date: 20140220
  Receipt Date: 20140220
  Transmission Date: 20141002
  Serious: Yes (Other)
  Sender: FDA-Public Use
  Company Number: FK201400539

PATIENT
  Age: 52 Year
  Sex: Male
  Weight: 100 kg

DRUGS (2)
  1. GEMCITABINE [Suspect]
     Indication: SARCOMA METASTATIC
     Route: 042
     Dates: start: 20140122
  2. DOCETAXEL [Suspect]
     Indication: SARCOMA METASTATIC
     Route: 042
     Dates: start: 20140122

REACTIONS (2)
  - Visual impairment [None]
  - Retinal vein occlusion [None]
